FAERS Safety Report 20920336 (Version 2)
Quarter: 2022Q2

REPORT INFORMATION
  Report Type: Spontaneous
  Country: CN (occurrence: None)
  Receive Date: 20220606
  Receipt Date: 20220628
  Transmission Date: 20220721
  Serious: Yes (Death)
  Sender: FDA-Public Use
  Company Number: CN-ROCHE-3108832

PATIENT
  Age: 21 Year
  Sex: Male

DRUGS (1)
  1. GAZYVA [Suspect]
     Active Substance: OBINUTUZUMAB
     Indication: Nephrotic syndrome
     Dosage: FEB/2022 AND MAR/2022
     Route: 042

REACTIONS (3)
  - Sepsis [Fatal]
  - Pneumonitis [Fatal]
  - Off label use [Unknown]
